FAERS Safety Report 12339088 (Version 1)
Quarter: 2016Q2

REPORT INFORMATION
  Report Type: Spontaneous
  Country: US (occurrence: US)
  Receive Date: 20160505
  Receipt Date: 20160505
  Transmission Date: 20160815
  Serious: No
  Sender: FDA-Public Use
  Company Number: US-MAYNE PHARMA-2015MYN000038

PATIENT
  Sex: Female

DRUGS (3)
  1. CYTOMEL [Suspect]
     Active Substance: LIOTHYRONINE SODIUM
     Indication: AUTOIMMUNE THYROIDITIS
     Dosage: UNK
     Dates: start: 201506
  2. LIOTHYRONINE [Suspect]
     Active Substance: LIOTHYRONINE
     Indication: AUTOIMMUNE THYROIDITIS
     Dosage: UNK
     Dates: start: 201505, end: 201506
  3. LEVOTHYROXINE. [Concomitant]
     Active Substance: LEVOTHYROXINE

REACTIONS (4)
  - Nasal discomfort [Recovered/Resolved]
  - Glossodynia [Recovered/Resolved]
  - Malaise [Recovered/Resolved]
  - Tooth infection [Recovered/Resolved]

NARRATIVE: CASE EVENT DATE: 201506
